FAERS Safety Report 4726248-4 (Version None)
Quarter: 2005Q3

REPORT INFORMATION
  Report Type: 
  Country: None (occurrence: None)
  Receive Date: 20050725
  Receipt Date: 20050713
  Transmission Date: 20060218
  Serious: Yes (Death)
  Sender: FDA-Public Use
  Company Number: HQWYE351110JUN05

PATIENT
  Age: 47 Year
  Sex: Female

DRUGS (1)
  1. EFECTIN                      (VENLAFAXINE HYDROCHLORIDE) [Suspect]
     Dosage: OVERDOSE
     Dates: start: 20050605, end: 20050605

REACTIONS (5)
  - COMPLETED SUICIDE [None]
  - HYPOTHERMIA [None]
  - INTENTIONAL MISUSE [None]
  - OVERDOSE [None]
  - RESPIRATORY ARREST [None]
